FAERS Safety Report 7903567-1 (Version None)
Quarter: 2011Q4

REPORT INFORMATION
  Report Type: 
  Country: None (occurrence: None)
  Receive Date: 20111109
  Receipt Date: 20111109
  Transmission Date: 20120403
  Serious: No
  Sender: FDA-Public Use
  Company Number: None

PATIENT
  Age: 42 Year
  Sex: Female
  Weight: 70.306 kg

DRUGS (1)
  1. THYROID TAB [Suspect]
     Indication: HYPOTHYROIDISM
     Dosage: 90MG
     Route: 048
     Dates: start: 20110912, end: 20111002

REACTIONS (5)
  - HYPOTHYROIDISM [None]
  - FEELING ABNORMAL [None]
  - PRODUCT COMMINGLING [None]
  - CONDITION AGGRAVATED [None]
  - DRUG DISPENSING ERROR [None]
